FAERS Safety Report 18595450 (Version 6)
Quarter: 2022Q1

REPORT INFORMATION
  Report Type: Spontaneous
  Country: US (occurrence: US)
  Receive Date: 20201209
  Receipt Date: 20220208
  Transmission Date: 20220424
  Serious: Yes (Death, Hospitalization, Other)
  Sender: FDA-Public Use
  Company Number: US-PFIZER INC-2020483220

PATIENT
  Age: 84 Year
  Sex: Male
  Weight: 70.31 kg

DRUGS (4)
  1. VYNDAMAX [Suspect]
     Active Substance: TAFAMIDIS
     Indication: Amyloidosis senile
     Dosage: 61 MG
  2. VYNDAMAX [Suspect]
     Active Substance: TAFAMIDIS
     Dosage: 61 MG, 1X/DAY
     Route: 048
     Dates: start: 20200128
  3. COUMADIN [Concomitant]
     Active Substance: WARFARIN SODIUM
     Dosage: UNK
  4. ASPIRIN [Concomitant]
     Active Substance: ASPIRIN
     Dosage: 81 MG

REACTIONS (10)
  - Fall [Fatal]
  - Subdural haematoma [Fatal]
  - Acute kidney injury [Unknown]
  - Seizure [Unknown]
  - Septic shock [Not Recovered/Not Resolved]
  - Renal failure [Unknown]
  - Illness [Unknown]
  - Cardiac disorder [Unknown]
  - Mental status changes [Unknown]
  - Off label use [Unknown]

NARRATIVE: CASE EVENT DATE: 20211022
